FAERS Safety Report 23641464 (Version 1)
Quarter: 2024Q1

REPORT INFORMATION
  Report Type: Report from Study
  Country: US (occurrence: US)
  Receive Date: 20240318
  Receipt Date: 20240318
  Transmission Date: 20240410
  Serious: No
  Sender: FDA-Public Use
  Company Number: US-ESPERIONTHERAPEUTICS-2024USA00044

PATIENT
  Sex: Female
  Weight: 53.515 kg

DRUGS (2)
  1. BEMPEDOIC ACID [Suspect]
     Active Substance: BEMPEDOIC ACID
     Indication: Blood cholesterol abnormal
     Dosage: 180 MILLIGRAM, QD
     Route: 048
     Dates: start: 20231211, end: 20240308
  2. LEQVIO [Concomitant]
     Active Substance: INCLISIRAN SODIUM
     Dosage: UNK
     Route: 065

REACTIONS (6)
  - Muscle tightness [Recovering/Resolving]
  - Asthenia [Recovering/Resolving]
  - Arthralgia [Recovering/Resolving]
  - Tendon pain [Not Recovered/Not Resolved]
  - Back pain [Recovering/Resolving]
  - Tendon rupture [Unknown]
